FAERS Safety Report 5052948-5 (Version None)
Quarter: 2006Q3

REPORT INFORMATION
  Report Type: 
  Country: None (occurrence: None)
  Receive Date: 20060711
  Receipt Date: 20060619
  Transmission Date: 20061208
  Serious: Yes (Other)
  Sender: FDA-Public Use
  Company Number: DK200606002305

PATIENT
  Sex: Female
  Weight: 73 kg

DRUGS (5)
  1. DULOXETINE HYDROCHLORIDE (DULOXETINE HYDROCHLORIDE) CAPSULE [Suspect]
     Indication: DEPRESSION
     Dosage: 60 MG, ORAL
     Route: 048
     Dates: start: 20060131
  2. REMERON [Concomitant]
  3. NEXIUM /UNK/(ESOMEPRAZOLE) [Concomitant]
  4. ALOPAM (OXAZEPAM) [Concomitant]
  5. STILNOCT (ZOLPIDEM TARTRATE) [Concomitant]

REACTIONS (1)
  - ELECTROCARDIOGRAM QT PROLONGED [None]
